FAERS Safety Report 8434764-7 (Version None)
Quarter: 2012Q2

REPORT INFORMATION
  Report Type: 
  Country: None (occurrence: None)
  Receive Date: 20120614
  Receipt Date: 20120604
  Transmission Date: 20120825
  Serious: Yes (Other)
  Sender: FDA-Public Use
  Company Number: CA-JNJFOC-20120602485

PATIENT
  Sex: Female
  Weight: 85 kg

DRUGS (2)
  1. REMICADE [Suspect]
     Indication: COLITIS ULCERATIVE
     Route: 042
     Dates: start: 20120207, end: 20120406
  2. REMICADE [Suspect]
     Route: 042
     Dates: start: 20110518

REACTIONS (1)
  - CERVICAL DYSPLASIA [None]
